FAERS Safety Report 8181742-1 (Version None)
Quarter: 2012Q1

REPORT INFORMATION
  Report Type: 
  Country: None (occurrence: None)
  Receive Date: 20120302
  Receipt Date: 20110919
  Transmission Date: 20120608
  Serious: No
  Sender: FDA-Public Use
  Company Number: US-AMGEN-USASP2011048239

PATIENT
  Age: 78 Year
  Sex: Female

DRUGS (4)
  1. CENTRUM SILVER                     /01292501/ [Concomitant]
  2. PROMACTA [Concomitant]
  3. OS-CAL                             /00188401/ [Concomitant]
  4. NPLATE [Suspect]
     Indication: IDIOPATHIC THROMBOCYTOPENIC PURPURA
     Dosage: UNK
     Dates: start: 20090101

REACTIONS (16)
  - NON-CARDIAC CHEST PAIN [None]
  - ABDOMINAL PAIN [None]
  - DYSPEPSIA [None]
  - PROCEDURAL PAIN [None]
  - EYE DISORDER [None]
  - TOOTH DISORDER [None]
  - MUSCULOSKELETAL PAIN [None]
  - APHAGIA [None]
  - DIZZINESS [None]
  - HEADACHE [None]
  - PLATELET COUNT INCREASED [None]
  - GASTROOESOPHAGEAL REFLUX DISEASE [None]
  - VERTIGO [None]
  - INSOMNIA [None]
  - CATARACT [None]
  - PAIN IN EXTREMITY [None]
